FAERS Safety Report 15890513 (Version 2)
Quarter: 2019Q1

REPORT INFORMATION
  Report Type: Report from Study
  Country: None (occurrence: CH)
  Receive Date: 20190130
  Receipt Date: 20190314
  Transmission Date: 20190417
  Serious: Yes (Hospitalization, Other)
  Sender: FDA-Public Use
  Company Number: CH-ABBVIE-19S-151-2641721-00

PATIENT
  Age: 67 Year
  Sex: Female

DRUGS (1)
  1. DUODOPA [Suspect]
     Active Substance: CARBIDOPA\LEVODOPA
     Indication: PARKINSON^S DISEASE
     Dosage: 1 CASSETTE/24 HOURS, 24 H THERAPY
     Route: 050
     Dates: start: 201806

REACTIONS (31)
  - Agitation [Unknown]
  - Circadian rhythm sleep disorder [Unknown]
  - Microangiopathy [Unknown]
  - Stress [Unknown]
  - Cognitive disorder [Not Recovered/Not Resolved]
  - Fine motor skill dysfunction [Unknown]
  - Dysarthria [Unknown]
  - Meningioma [Unknown]
  - Cognitive disorder [Unknown]
  - Cerebral atrophy [Unknown]
  - Hypotension [Unknown]
  - Fatigue [Unknown]
  - Rapid eye movements sleep abnormal [Unknown]
  - Periodic limb movement disorder [Unknown]
  - Hallucination [Not Recovered/Not Resolved]
  - Pain [Unknown]
  - Food refusal [Unknown]
  - Mobility decreased [Unknown]
  - Urinary tract infection [Unknown]
  - Insomnia [Unknown]
  - Anxiety [Unknown]
  - Gastrointestinal disorder [Unknown]
  - Somnolence [Unknown]
  - Dementia [Not Recovered/Not Resolved]
  - Reduced facial expression [Unknown]
  - Constipation [Unknown]
  - Screaming [Unknown]
  - Gait disturbance [Unknown]
  - Muscle rigidity [Unknown]
  - Abdominal pain [Not Recovered/Not Resolved]
  - Bradykinesia [Unknown]

NARRATIVE: CASE EVENT DATE: 20181212
